FAERS Safety Report 7290415-9 (Version None)
Quarter: 2011Q1

REPORT INFORMATION
  Report Type: 
  Country: None (occurrence: None)
  Receive Date: 20110214
  Receipt Date: 20110204
  Transmission Date: 20110831
  Serious: Yes (Hospitalization, Other)
  Sender: FDA-Public Use
  Company Number: US-JNJFOC-20090403324

PATIENT
  Sex: Female
  Weight: 72.58 kg

DRUGS (14)
  1. LASIX [Concomitant]
     Route: 048
  2. XANAX [Concomitant]
     Indication: ANXIETY
     Dosage: AT BED TIME
     Route: 048
  3. BENTYL [Concomitant]
     Indication: GASTROINTESTINAL DISORDER
     Route: 048
  4. WELLBUTRIN [Concomitant]
     Indication: DEPRESSION
     Route: 048
  5. PROTONIX [Concomitant]
     Indication: GASTROINTESTINAL DISORDER
     Route: 048
  6. LASIX [Concomitant]
     Route: 048
  7. LASIX [Concomitant]
     Indication: OEDEMA
     Route: 048
  8. ALDACTONE [Concomitant]
     Indication: BLOOD POTASSIUM ABNORMAL
     Route: 048
  9. LASIX [Concomitant]
     Indication: FLUID RETENTION
     Route: 048
  10. TRAZODONE HCL [Concomitant]
     Indication: SLEEP DISORDER
     Route: 048
  11. DURAGESIC-50 [Suspect]
     Indication: CANCER PAIN
     Route: 062
  12. DILAUDID [Concomitant]
     Indication: BREAKTHROUGH PAIN
     Route: 054
  13. XANAX [Concomitant]
     Indication: SLEEP DISORDER THERAPY
     Dosage: AT BED TIME
     Route: 048
  14. FENTANYL-100 [Suspect]
     Indication: PANCREATITIS CHRONIC
     Route: 062

REACTIONS (8)
  - CELLULITIS [None]
  - WRONG TECHNIQUE IN DRUG USAGE PROCESS [None]
  - PRODUCT ADHESION ISSUE [None]
  - PANCREATITIS [None]
  - HEPATIC ENZYME INCREASED [None]
  - WEIGHT DECREASED [None]
  - DRUG DOSE OMISSION [None]
  - JOINT SWELLING [None]
